FAERS Safety Report 18369366 (Version 2)
Quarter: 2021Q1

REPORT INFORMATION
  Report Type: Spontaneous
  Country: DE (occurrence: DE)
  Receive Date: 20201012
  Receipt Date: 20210310
  Transmission Date: 20210419
  Serious: Yes (Hospitalization)
  Sender: FDA-Public Use
  Company Number: DE-CELLTRION INC.-2020DE028576

PATIENT

DRUGS (5)
  1. RITUXIMAB (UNKNOWN) [Suspect]
     Active Substance: RITUXIMAB
     Indication: MARGINAL ZONE LYMPHOMA
     Dosage: UNK, MAINTENANCE THERAPY
     Route: 065
     Dates: start: 201709, end: 201908
  2. AMPICILLIN [Concomitant]
     Active Substance: AMPICILLIN
     Dosage: 2 G
  3. SULBACTAM [Concomitant]
     Active Substance: SULBACTAM
     Dosage: 1G/0.33 DAY
  4. RITUXIMAB (UNKNOWN) [Suspect]
     Active Substance: RITUXIMAB
     Indication: NON-HODGKIN^S LYMPHOMA
     Dosage: UNK, 6 CYCLE
     Route: 065
     Dates: start: 2017
  5. BENDAMUSTINE [Suspect]
     Active Substance: BENDAMUSTINE
     Indication: MARGINAL ZONE LYMPHOMA
     Dosage: 6 CYCLE
     Route: 065
     Dates: start: 2017

REACTIONS (13)
  - SARS-CoV-2 test false negative [Unknown]
  - COVID-19 [Recovered/Resolved]
  - Respiratory failure [Recovered/Resolved]
  - Hypogammaglobulinaemia [Recovered/Resolved]
  - C-reactive protein increased [Recovered/Resolved]
  - Lymphopenia [Recovered/Resolved]
  - Respiratory alkalosis [Recovered/Resolved]
  - Blood lactate dehydrogenase increased [Recovered/Resolved]
  - Pyrexia [Recovered/Resolved]
  - Condition aggravated [Recovered/Resolved]
  - Anaemia [Recovered/Resolved]
  - Cough [Recovered/Resolved]
  - Off label use [Unknown]
